FAERS Safety Report 7392223-7 (Version None)
Quarter: 2011Q2

REPORT INFORMATION
  Report Type: 
  Country: None (occurrence: None)
  Receive Date: 20110404
  Receipt Date: 20110325
  Transmission Date: 20111010
  Serious: Yes (Death, Other)
  Sender: FDA-Public Use
  Company Number: US-BRACCO-002917

PATIENT
  Sex: Male
  Weight: 77 kg

DRUGS (72)
  1. MULTIHANCE [Suspect]
     Indication: NUCLEAR MAGNETIC RESONANCE IMAGING
     Dosage: MEDICAL RECORD LISTS MULTIHANCE AND PLAINTIFF FACT SHEET LISTS MAGNEVIST FOR THIS DATE
     Route: 042
     Dates: start: 20070731, end: 20070731
  2. MAGNEVIST [Suspect]
     Route: 042
     Dates: start: 20060209, end: 20060209
  3. MAGNEVIST [Suspect]
     Route: 042
     Dates: start: 20050310, end: 20050310
  4. MAGNEVIST [Suspect]
     Route: 042
     Dates: start: 20070801, end: 20070801
  5. MAGNEVIST [Suspect]
     Route: 042
     Dates: start: 20060808, end: 20060808
  6. MAGNEVIST [Suspect]
     Route: 065
     Dates: start: 20080423, end: 20080423
  7. PLAVIX [Concomitant]
  8. IMODIUM [Concomitant]
     Indication: DIARRHOEA
     Dates: start: 20080520
  9. AVASTIN [Concomitant]
     Dates: start: 20080229
  10. COLACE [Concomitant]
  11. MORPHINE [Concomitant]
  12. CHLORHEXIDINE GLUCONATE [Concomitant]
     Route: 048
  13. MAGNEVIST [Suspect]
     Route: 042
     Dates: start: 20060505, end: 20060505
  14. MAGNEVIST [Suspect]
     Route: 042
     Dates: start: 20070508, end: 20070508
  15. MAGNEVIST [Suspect]
     Route: 065
     Dates: start: 20070615, end: 20070615
  16. MAGNEVIST [Suspect]
     Route: 042
     Dates: start: 20070904, end: 20070904
  17. MAGNEVIST [Suspect]
     Route: 042
     Dates: start: 20061114, end: 20061114
  18. MAGNEVIST [Suspect]
     Route: 042
     Dates: start: 20070618, end: 20070618
  19. MAGNEVIST [Suspect]
     Route: 065
     Dates: start: 20080418, end: 20080418
  20. GEMCITABINE [Concomitant]
  21. LEVOPHED [Concomitant]
     Indication: HYPOTENSION
     Route: 041
     Dates: start: 20080520
  22. ANCEF [Concomitant]
  23. MAGNEVIST [Suspect]
     Indication: NUCLEAR MAGNETIC RESONANCE IMAGING
     Route: 042
     Dates: start: 20060208, end: 20060208
  24. MAGNEVIST [Suspect]
     Indication: METASTASES TO CENTRAL NERVOUS SYSTEM
     Route: 042
     Dates: start: 20050823, end: 20050823
  25. MAGNEVIST [Suspect]
     Indication: METASTATIC RENAL CELL CARCINOMA
     Route: 042
     Dates: start: 20050928, end: 20050928
  26. MAGNEVIST [Suspect]
     Route: 042
     Dates: start: 20050627, end: 20050627
  27. MAGNEVIST [Suspect]
     Route: 042
     Dates: start: 20071114, end: 20071114
  28. MAGNEVIST [Suspect]
     Route: 042
     Dates: start: 20080219, end: 20080219
  29. MAGNEVIST [Suspect]
     Route: 042
     Dates: start: 20041230, end: 20041230
  30. OMNISCAN [Suspect]
     Indication: TRANSIENT ISCHAEMIC ATTACK
     Route: 042
     Dates: start: 20041220, end: 20041220
  31. TEQUIN [Concomitant]
  32. SENOKOT [Concomitant]
  33. MAGNEVIST [Suspect]
     Indication: NUCLEAR MAGNETIC RESONANCE IMAGING BRAIN
     Route: 042
     Dates: start: 20060504, end: 20060504
  34. MAGNEVIST [Suspect]
     Route: 042
     Dates: start: 20051115, end: 20051115
  35. MAGNEVIST [Suspect]
     Route: 042
     Dates: start: 20070321, end: 20070321
  36. MAGNEVIST [Suspect]
     Route: 042
     Dates: start: 20070320, end: 20070320
  37. OMNISCAN [Suspect]
     Indication: METASTATIC RENAL CELL CARCINOMA
     Route: 042
     Dates: start: 20041220, end: 20041220
  38. ATIVAN [Concomitant]
     Indication: ANXIETY
  39. I.V. SOLUTIONS [Concomitant]
     Route: 040
     Dates: start: 20080520
  40. AVASTIN [Concomitant]
     Route: 042
  41. MAGNEVIST [Suspect]
     Route: 042
     Dates: start: 20051116, end: 20051116
  42. MAGNEVIST [Suspect]
     Dosage: NOTE FROM MEDICAL RECORDS CONTRADICTS PLAINTIFF FACT SHEET AND LIST MULTIHANCE AS CONTRAST AGENT
     Route: 042
     Dates: start: 20070731, end: 20070731
  43. MAGNEVIST [Suspect]
     Route: 065
     Dates: start: 20050517, end: 20050517
  44. MIRALAX [Concomitant]
     Indication: CONSTIPATION
  45. ASPIRIN [Concomitant]
  46. AMBIEN [Concomitant]
  47. DECADRON [Concomitant]
  48. ACETAMINOPHEN [Concomitant]
  49. MAGNEVIST [Suspect]
     Route: 042
     Dates: start: 20041231, end: 20041231
  50. MAGNEVIST [Suspect]
     Route: 042
     Dates: start: 20050404, end: 20050404
  51. MAGNEVIST [Suspect]
     Dosage: REPORTED AS ^MAG^
     Route: 042
     Dates: start: 20050624, end: 20050624
  52. MAGNEVIST [Suspect]
     Route: 042
     Dates: start: 20080220, end: 20080220
  53. OMNISCAN [Suspect]
     Indication: NUCLEAR MAGNETIC RESONANCE IMAGING BRAIN
     Route: 042
     Dates: start: 20041220, end: 20041220
  54. OMNISCAN [Suspect]
     Indication: ANGIOGRAM CEREBRAL
     Route: 042
     Dates: start: 20060809, end: 20060809
  55. ANALGESICS [Concomitant]
     Indication: PAIN
     Route: 065
  56. ANTINEOPLASTIC AGENTS [Concomitant]
     Indication: NEOPLASM MALIGNANT
  57. SORAFENIB [Concomitant]
     Indication: NEOPLASM MALIGNANT
     Dosage: DURATION 1 YEAR
     Route: 065
     Dates: start: 20060101, end: 20070101
  58. INTERFERON [Concomitant]
     Indication: NEOPLASM
     Dosage: DURATION 1 YEAR
     Route: 065
     Dates: start: 20050101, end: 20060101
  59. XANAX [Concomitant]
     Indication: ANXIETY
     Dates: start: 20080520
  60. PEPCID [Concomitant]
  61. PHENERGAN HCL [Concomitant]
  62. MAGNEVIST [Suspect]
     Route: 042
     Dates: start: 20050311, end: 20050311
  63. MAGNEVIST [Suspect]
     Route: 042
     Dates: start: 20061115, end: 20061115
  64. CAPECITABINE [Concomitant]
  65. VICODIN [Concomitant]
  66. PROTONIX [Concomitant]
  67. ARANESP [Concomitant]
     Indication: ANAEMIA
     Dosage: 1 DOSE
     Dates: start: 20071101
  68. MAGNEVIST [Suspect]
     Route: 042
     Dates: start: 20050207, end: 20050207
  69. MAGNEVIST [Suspect]
     Route: 042
     Dates: start: 20070509, end: 20070509
  70. KEPPRA [Concomitant]
     Indication: CONVULSION
     Route: 048
  71. TORISEL [Concomitant]
     Indication: NEOPLASM
     Route: 065
     Dates: start: 20070801, end: 20080101
  72. PERCOCET [Concomitant]

REACTIONS (2)
  - RENAL CELL CARCINOMA [None]
  - NEPHROGENIC SYSTEMIC FIBROSIS [None]
